FAERS Safety Report 6983651-X (Version None)
Quarter: 2010Q3

REPORT INFORMATION
  Report Type: 
  Country: None (occurrence: None)
  Receive Date: 20100914
  Receipt Date: 20081203
  Transmission Date: 20110219
  Serious: No
  Sender: FDA-Public Use
  Company Number: US-WYE-H07077808

PATIENT
  Age: 67 Year
  Sex: Male
  Weight: 72.64 kg

DRUGS (5)
  1. ADVIL LIQUI-GELS [Suspect]
     Indication: PAIN
     Dosage: 2 CAPLETS DAILY
     Route: 048
     Dates: start: 20080923
  2. EXFORGE [Concomitant]
  3. ALTACE [Concomitant]
  4. PAXIL [Concomitant]
  5. TRAZODONE HCL [Concomitant]

REACTIONS (3)
  - FLATULENCE [None]
  - HUNGER [None]
  - HYPERCHLORHYDRIA [None]
